FAERS Safety Report 10128576 (Version 1)
Quarter: 2014Q2

REPORT INFORMATION
  Report Type: Spontaneous
  Country: US (occurrence: US)
  Receive Date: 20140428
  Receipt Date: 20140428
  Transmission Date: 20141212
  Serious: Yes (Other)
  Sender: FDA-Public Use
  Company Number: US-UCBSA-118720

PATIENT
  Sex: Female

DRUGS (2)
  1. CIMZIA [Suspect]
     Indication: CROHN^S DISEASE
     Dosage: WEEKS 0-2-4 , INJECT 2 SYRINGES (200 MG EACH)
     Route: 058
     Dates: start: 201106
  2. CIMZIA [Suspect]
     Indication: CROHN^S DISEASE
     Dosage: MAINTAINENCE DOSING, INJECT 1 SYRINGE 200 MG
     Route: 058
     Dates: end: 201212

REACTIONS (2)
  - Abortion spontaneous [Unknown]
  - Pregnancy [Recovered/Resolved]
